FAERS Safety Report 4593941-6 (Version None)
Quarter: 2005Q1

REPORT INFORMATION
  Report Type: 
  Country: None (occurrence: None)
  Receive Date: 20050301
  Receipt Date: 20050218
  Transmission Date: 20050727
  Serious: Yes (Other)
  Sender: FDA-Public Use
  Company Number: US-MERCK-0502USA02687

PATIENT
  Age: 59 Year
  Sex: Female

DRUGS (2)
  1. FOSAMAX [Suspect]
     Indication: OSTEOPOROSIS
     Route: 048
     Dates: start: 19950101
  2. CALCIUM (UNSPECIFIED) [Concomitant]
     Route: 065

REACTIONS (8)
  - ASEPTIC NECROSIS BONE [None]
  - BONE DENSITY DECREASED [None]
  - BONE DISORDER [None]
  - DRUG EFFECT DECREASED [None]
  - DRUG INEFFECTIVE [None]
  - GASTROINTESTINAL DISORDER [None]
  - PERIODONTAL DISEASE [None]
  - TOOTH DEPOSIT [None]
